FAERS Safety Report 9881483 (Version 1)
Quarter: 2014Q1

REPORT INFORMATION
  Report Type: Report from Study
  Country: JP (occurrence: JP)
  Receive Date: 20140207
  Receipt Date: 20140207
  Transmission Date: 20141002
  Serious: Yes (Death, Hospitalization, Other)
  Sender: FDA-Public Use
  Company Number: JP-009507513-1402JPN003128

PATIENT
  Age: 76 Year
  Sex: Male
  Weight: 69 kg

DRUGS (30)
  1. TEMOZOLOMIDE [Suspect]
     Indication: GLIOBLASTOMA MULTIFORME
     Dosage: 150 MG/M2, QD
     Route: 041
     Dates: start: 20110131, end: 20110204
  2. TEMOZOLOMIDE [Suspect]
     Dosage: 200 MG/M2, QD
     Route: 041
     Dates: start: 20110309, end: 20110313
  3. TEMOZOLOMIDE [Suspect]
     Dosage: 200 MG/M2, QD
     Route: 041
     Dates: start: 20110418, end: 20110422
  4. TEMOZOLOMIDE [Suspect]
     Dosage: 200 MG/M2, QD
     Route: 041
     Dates: start: 20110517, end: 20110521
  5. TEMODAL [Suspect]
     Indication: GLIOBLASTOMA MULTIFORME
     Dosage: DAILY DOSE UNKNOWN
     Route: 048
     Dates: start: 20101220, end: 20110102
  6. TEMODAL [Suspect]
     Dosage: DAILY DOSE UNKNOWN
     Route: 048
     Dates: start: 20110621
  7. ZANTAC [Suspect]
     Indication: PROPHYLAXIS
     Dosage: DAILY DOSE UNKNOWN
     Route: 048
     Dates: start: 20101122
  8. ZANTAC [Suspect]
     Dosage: DAILY DOSE UNKNOWN
     Route: 048
     Dates: start: 20110404, end: 20110419
  9. TEGRETOL [Suspect]
     Dosage: DAILY DOSEAGE UNKNOWN
     Route: 048
  10. BAKTAR [Concomitant]
     Indication: ANTIFUNGAL PROPHYLAXIS
     Dosage: DAILY DOSEAGE UNKNOWN
     Route: 048
     Dates: start: 20101220, end: 20110102
  11. LIPITOR [Concomitant]
     Indication: PROPHYLAXIS
     Dosage: DAILY DOSEAGE UNKNOWN
     Route: 048
     Dates: start: 20101208
  12. LIPITOR [Concomitant]
     Dosage: DAILY DOSEAGE UNKNOWN
     Route: 048
     Dates: start: 20110404, end: 20110419
  13. AMLODIN (AMLODIPINE BESYLATE) [Concomitant]
     Dosage: DAILY DOSEAGE UNKNOWN
     Route: 048
     Dates: start: 20101120
  14. AMLODIN (AMLODIPINE BESYLATE) [Concomitant]
     Dosage: DAILY DOSEAGE UNKNOWN
     Route: 048
     Dates: start: 20110404, end: 20110419
  15. MAGNESIUM OXIDE [Concomitant]
     Dosage: DAILY DOSAGE UNKNOWN
     Route: 048
     Dates: start: 20101208
  16. HARNAL [Concomitant]
     Indication: PROPHYLAXIS
     Dosage: DAILY DOSAGE UNKNOWN
     Route: 048
     Dates: start: 20101120
  17. HARNAL [Concomitant]
     Dosage: DAILY DOSAGE UNKNOWN
     Route: 048
     Dates: start: 20110404, end: 20110419
  18. PREDNISOLONE [Concomitant]
     Dosage: DAILY DOSAGE UNKNOWN
     Route: 048
     Dates: start: 20101122
  19. PREDNISOLONE [Concomitant]
     Dosage: DAILY DOSAGE UNKNOWN
     Route: 048
     Dates: start: 20110404, end: 20110419
  20. VALIXA [Concomitant]
     Dosage: DAILY DOSAGE UNKNOWN
     Route: 048
     Dates: start: 20110128, end: 20110214
  21. POTASSIUM ASPARTATE [Concomitant]
     Dosage: DAILY DOSAGE UNKNOWN
     Route: 048
     Dates: start: 20110125
  22. PROMAC (POLAPREZINC) [Concomitant]
     Indication: PROPHYLAXIS
     Dosage: DAILY DOSAGE UNKNOWN
     Route: 048
     Dates: start: 20110206
  23. PROMAC (POLAPREZINC) [Concomitant]
     Dosage: DAILY DOSAGE UNKNOWN
     Route: 048
     Dates: start: 20110404, end: 20110419
  24. GRANISETRON [Concomitant]
     Indication: PROPHYLAXIS
     Dosage: DAILY DOSE UNKNOWN
     Route: 041
     Dates: start: 20110131, end: 20110204
  25. GRANISETRON [Concomitant]
     Dosage: DAILY DOSE UNKNOWN
     Route: 041
     Dates: start: 20110308, end: 20110312
  26. GRANISETRON [Concomitant]
     Dosage: DAILY DOSE UNKNOWN
     Route: 041
     Dates: start: 20110408, end: 20110412
  27. GRANISETRON [Concomitant]
     Dosage: DAILY DOSE UNKNOWN
     Route: 041
     Dates: start: 20110517, end: 20110521
  28. MAGLAX (MAGNESIUM OXIDE) [Concomitant]
     Dosage: DAILY DOSE UNKNOWN
     Route: 048
     Dates: start: 20110404, end: 20110419
  29. GLUCONSAN K [Concomitant]
     Dosage: DAILY DOSE UNKNOWN
     Route: 048
     Dates: start: 20110404, end: 20110419
  30. LAXOBERON [Concomitant]
     Indication: CONSTIPATION
     Dosage: DAILY DOSE UNKNWON
     Route: 048
     Dates: start: 20110404, end: 20110416

REACTIONS (12)
  - Disease progression [Fatal]
  - Inflammation of wound [Not Recovered/Not Resolved]
  - Subcutaneous abscess [Not Recovered/Not Resolved]
  - Drug reaction with eosinophilia and systemic symptoms [Recovering/Resolving]
  - Cytomegalovirus infection [Recovered/Resolved]
  - Constipation [Recovering/Resolving]
  - Anaemia [Recovering/Resolving]
  - Lymphocyte count decreased [Recovering/Resolving]
  - White blood cell count decreased [Recovered/Resolved]
  - Neutrophil count decreased [Recovering/Resolving]
  - Lymphocyte count decreased [Recovering/Resolving]
  - Hepatic function abnormal [Recovered/Resolved]
